FAERS Safety Report 14699976 (Version 1)
Quarter: 2018Q1

REPORT INFORMATION
  Report Type: Spontaneous
  Country: US (occurrence: US)
  Receive Date: 20180329
  Receipt Date: 20180329
  Transmission Date: 20180509
  Serious: Yes (Other)
  Sender: FDA-Public Use
  Company Number: None

PATIENT
  Age: 39 Year
  Sex: Male
  Weight: 81 kg

DRUGS (3)
  1. TESTOSTERONE. [Concomitant]
     Active Substance: TESTOSTERONE
  2. NEURONTIN [Suspect]
     Active Substance: GABAPENTIN
     Indication: POSTOPERATIVE CARE
     Dosage: ?          QUANTITY:270 CAPSULE(S);?
     Route: 048
     Dates: start: 20160903, end: 20170315
  3. POWERGIZE SUPPLEMENT [Concomitant]

REACTIONS (1)
  - Depression [None]

NARRATIVE: CASE EVENT DATE: 20170315
